FAERS Safety Report 18245486 (Version 1)
Quarter: 2020Q3

REPORT INFORMATION
  Report Type: Spontaneous
  Country: US (occurrence: US)
  Receive Date: 20200908
  Receipt Date: 20200908
  Transmission Date: 20201103
  Serious: Yes (Other)
  Sender: FDA-Public Use
  Company Number: None

PATIENT
  Age: 54 Year
  Sex: Male
  Weight: 92.25 kg

DRUGS (4)
  1. PREACID [Concomitant]
     Active Substance: UNSPECIFIED INGREDIENT
  2. COLESTIPOL [Concomitant]
     Active Substance: COLESTIPOL
  3. BUTRANS [Suspect]
     Active Substance: BUPRENORPHINE
     Indication: PAIN
     Dosage: ?          QUANTITY:1 PATCH(ES);OTHER FREQUENCY:EVERY 7 DAYS;?
     Route: 062
     Dates: start: 20200601, end: 20200627
  4. PROPRANOLOL [Concomitant]
     Active Substance: PROPRANOLOL HYDROCHLORIDE

REACTIONS (11)
  - Device leakage [None]
  - Application site irritation [None]
  - Drug delivery system issue [None]
  - Application site vesicles [None]
  - Application site erythema [None]
  - Application site burn [None]
  - Third degree chemical burn of skin [None]
  - Application site odour [None]
  - Application site scar [None]
  - Application site pruritus [None]
  - Application site discharge [None]

NARRATIVE: CASE EVENT DATE: 20200601
